FAERS Safety Report 8212287-8 (Version None)
Quarter: 2012Q1

REPORT INFORMATION
  Report Type: 
  Country: None (occurrence: None)
  Receive Date: 20120315
  Receipt Date: 20120313
  Transmission Date: 20120608
  Serious: Yes (Death)
  Sender: FDA-Public Use
  Company Number: CA-ROCHE-1046212

PATIENT
  Sex: Female

DRUGS (2)
  1. XELODA [Suspect]
     Indication: OESOPHAGEAL CARCINOMA
     Dosage: DAYS 1-21
     Route: 048
     Dates: start: 20120125
  2. XELODA [Suspect]
     Dosage: DAYS 1-21
     Route: 048
     Dates: start: 20120125

REACTIONS (1)
  - DEATH [None]
